FAERS Safety Report 5111615-X (Version None)
Quarter: 2006Q3

REPORT INFORMATION
  Report Type: 
  Country: None (occurrence: None)
  Receive Date: 20060922
  Receipt Date: 20060915
  Transmission Date: 20061208
  Serious: Yes (Hospitalization)
  Sender: FDA-Public Use
  Company Number: PHNR2006AU01218

PATIENT
  Age: 47 Year
  Sex: Male

DRUGS (2)
  1. VOLTAREN [Suspect]
     Dosage: 25MG 1 TIME
     Route: 048
     Dates: start: 20060511, end: 20060511
  2. FISH OIL [Concomitant]
     Dosage: 3 UNSPECIFIED DOSE 3 TIMES
     Route: 048

REACTIONS (4)
  - PRURITUS [None]
  - SWELLING FACE [None]
  - SWOLLEN TONGUE [None]
  - URTICARIA [None]
